FAERS Safety Report 7157799-3 (Version None)
Quarter: 2010Q4

REPORT INFORMATION
  Report Type: 
  Country: None (occurrence: None)
  Receive Date: 20101214
  Receipt Date: 20100301
  Transmission Date: 20110411
  Serious: No
  Sender: FDA-Public Use
  Company Number: US-ASTRAZENECA-2010SE06559

PATIENT
  Age: 66 Year
  Sex: Female
  Weight: 54.4 kg

DRUGS (9)
  1. CRESTOR [Suspect]
     Indication: BLOOD CHOLESTEROL INCREASED
     Route: 048
  2. LIPITOR [Suspect]
     Indication: BLOOD CHOLESTEROL INCREASED
  3. LIPITOR [Suspect]
  4. PLAVIX [Concomitant]
  5. GLUCOPHAGE [Concomitant]
     Indication: DIABETES MELLITUS
  6. BENECAR [Concomitant]
  7. INSULIN [Concomitant]
  8. PRILOSEC [Concomitant]
     Indication: HIATUS HERNIA
  9. LANTUS [Concomitant]
     Indication: DIABETES MELLITUS

REACTIONS (4)
  - CYSTITIS [None]
  - MYALGIA [None]
  - NAUSEA [None]
  - URETHRAL HAEMORRHAGE [None]
